FAERS Safety Report 5406582-5 (Version None)
Quarter: 2007Q3

REPORT INFORMATION
  Report Type: 
  Country: None (occurrence: None)
  Receive Date: 20070806
  Receipt Date: 20070725
  Transmission Date: 20080115
  Serious: Yes (Other)
  Sender: FDA-Public Use
  Company Number: CA-PFIZER INC-2007056922

PATIENT
  Sex: Female

DRUGS (2)
  1. NITROSTAT [Suspect]
     Route: 060
  2. NITRO-DUR [Suspect]

REACTIONS (1)
  - ANGINA PECTORIS [None]
